FAERS Safety Report 6216894-3 (Version None)
Quarter: 2009Q2

REPORT INFORMATION
  Report Type: 
  Country: None (occurrence: None)
  Receive Date: 20090605
  Receipt Date: 20090526
  Transmission Date: 20091009
  Serious: Yes (Other)
  Sender: FDA-Public Use
  Company Number: US-SANOFI-SYNTHELABO-A03200901398

PATIENT
  Age: 82 Year
  Sex: Female

DRUGS (4)
  1. MINERAL TAB [Concomitant]
     Indication: DRUG USE FOR UNKNOWN INDICATION
     Dosage: UNK
     Route: 065
  2. VITAMINS [Concomitant]
     Indication: DRUG USE FOR UNKNOWN INDICATION
     Dosage: UNK
     Route: 065
  3. FISH OIL [Concomitant]
     Indication: DRUG USE FOR UNKNOWN INDICATION
     Dosage: UNK
     Route: 065
  4. AMBIEN CR [Suspect]
     Indication: SLEEP DISORDER
     Route: 048
     Dates: start: 20081001, end: 20090301

REACTIONS (5)
  - AMNESIA [None]
  - LOSS OF CONSCIOUSNESS [None]
  - RIB FRACTURE [None]
  - SOMNAMBULISM [None]
  - THORACIC VERTEBRAL FRACTURE [None]
